FAERS Safety Report 7298646-9 (Version None)
Quarter: 2011Q1

REPORT INFORMATION
  Report Type: 
  Country: None (occurrence: None)
  Receive Date: 20110217
  Receipt Date: 20110211
  Transmission Date: 20110831
  Serious: Yes (Other)
  Sender: FDA-Public Use
  Company Number: FR-JNJFOC-20110204305

PATIENT
  Age: 89 Month
  Sex: Male

DRUGS (2)
  1. RISPERDAL [Suspect]
     Indication: PERSECUTORY DELUSION
     Route: 048
  2. RISPERDAL [Suspect]
     Route: 048

REACTIONS (2)
  - ABDOMINAL PAIN [None]
  - ABDOMINAL RIGIDITY [None]
